FAERS Safety Report 17439551 (Version 1)
Quarter: 2020Q1

REPORT INFORMATION
  Report Type: Spontaneous
  Country: GB (occurrence: GB)
  Receive Date: 20200220
  Receipt Date: 20200220
  Transmission Date: 20200409
  Serious: Yes (Disabling, Other)
  Sender: FDA-Public Use
  Company Number: GB-009507513-2002GBR006916

PATIENT
  Age: 17 Year
  Sex: Female
  Weight: 80 kg

DRUGS (1)
  1. NEXPLANON [Suspect]
     Active Substance: ETONOGESTREL
     Indication: CONTRACEPTION
     Dosage: UNK
     Dates: start: 20200108

REACTIONS (5)
  - Menstruation irregular [Unknown]
  - Mood swings [Not Recovered/Not Resolved]
  - Headache [Unknown]
  - Dysmenorrhoea [Unknown]
  - Muscle spasms [Unknown]

NARRATIVE: CASE EVENT DATE: 20200108
